FAERS Safety Report 15490886 (Version 1)
Quarter: 2018Q4

REPORT INFORMATION
  Report Type: Spontaneous
  Country: FR (occurrence: FR)
  Receive Date: 20181012
  Receipt Date: 20181012
  Transmission Date: 20190205
  Serious: Yes (Hospitalization)
  Sender: FDA-Public Use
  Company Number: FR-009507513-1810FRA004206

PATIENT
  Age: 64 Year
  Sex: Female
  Weight: 64 kg

DRUGS (1)
  1. JANUVIA [Suspect]
     Active Substance: SITAGLIPTIN PHOSPHATE
     Indication: DIABETES MELLITUS
     Dosage: 1 DF, QD
     Route: 048

REACTIONS (1)
  - Cholangiocarcinoma [Unknown]

NARRATIVE: CASE EVENT DATE: 20131025
